FAERS Safety Report 13293985 (Version 2)
Quarter: 2017Q1

REPORT INFORMATION
  Report Type: Spontaneous
  Country: US (occurrence: US)
  Receive Date: 20170303
  Receipt Date: 20170328
  Transmission Date: 20170428
  Serious: Yes (Other)
  Sender: FDA-Public Use
  Company Number: US-AKORN PHARMACEUTICALS-2017AKN00230

PATIENT
  Age: 19 Year
  Sex: Female

DRUGS (3)
  1. UNSPECIFIED BIRTH CONTROL PILL [Concomitant]
     Active Substance: UNSPECIFIED INGREDIENT
  2. MYORISAN [Suspect]
     Active Substance: ISOTRETINOIN
     Indication: ACNE
     Dosage: 40 MG, 2X/DAY
     Route: 048
     Dates: start: 20160719, end: 20170220
  3. ZENATANE [Suspect]
     Active Substance: ISOTRETINOIN
     Dosage: UNK
     Dates: start: 20160830, end: 2017

REACTIONS (4)
  - Panic attack [Unknown]
  - Transient ischaemic attack [Unknown]
  - Coagulopathy [Unknown]
  - Benign intracranial hypertension [Unknown]

NARRATIVE: CASE EVENT DATE: 2017
